FAERS Safety Report 12525228 (Version 1)
Quarter: 2016Q3

REPORT INFORMATION
  Report Type: Spontaneous
  Country: US (occurrence: US)
  Receive Date: 20160704
  Receipt Date: 20160704
  Transmission Date: 20161109
  Serious: No
  Sender: FDA-Public Use
  Company Number: US-009507513-1606USA012004

PATIENT
  Sex: Female

DRUGS (1)
  1. NEXPLANON [Suspect]
     Active Substance: ETONOGESTREL
     Indication: CONTRACEPTION
     Dosage: 1 ROD/3YEARS
     Route: 059
     Dates: start: 201605

REACTIONS (1)
  - Implant site hypoaesthesia [Recovered/Resolved]

NARRATIVE: CASE EVENT DATE: 2016
